FAERS Safety Report 12426108 (Version 5)
Quarter: 2017Q3

REPORT INFORMATION
  Report Type: Report from Study
  Country: JP (occurrence: JP)
  Receive Date: 20160601
  Receipt Date: 20170810
  Transmission Date: 20171127
  Serious: Yes (Hospitalization)
  Sender: FDA-Public Use
  Company Number: PHJP2016JP013657

PATIENT
  Age: 62 Year
  Sex: Female
  Weight: 65 kg

DRUGS (3)
  1. BYL719 [Suspect]
     Active Substance: ALPELISIB
     Indication: BREAST CANCER
     Dosage: 300 MG, QD
     Route: 048
     Dates: start: 20160509, end: 20160517
  2. COMPARATOR LETROZOLE [Suspect]
     Active Substance: LETROZOLE
     Indication: BREAST CANCER
     Dosage: 2.5 MG, UNK
     Route: 048
     Dates: start: 20160509
  3. BYL719 [Suspect]
     Active Substance: ALPELISIB
     Dosage: 300 MG, QD
     Route: 048
     Dates: start: 20160524

REACTIONS (1)
  - Dehydration [Recovered/Resolved]

NARRATIVE: CASE EVENT DATE: 20160525
